FAERS Safety Report 20945200 (Version 1)
Quarter: 2022Q2

REPORT INFORMATION
  Report Type: Spontaneous
  Country: US (occurrence: None)
  Receive Date: 20220609
  Receipt Date: 20220609
  Transmission Date: 20220720
  Serious: No
  Sender: FDA-Public Use
  Company Number: None

PATIENT
  Age: 76 Year
  Sex: Male

DRUGS (1)
  1. AMBRISENTAN [Suspect]
     Active Substance: AMBRISENTAN
     Indication: Pulmonary hypertension
     Dosage: FREQUENCY : DAILY;?
     Route: 048

REACTIONS (14)
  - Chest pain [None]
  - Oxygen saturation decreased [None]
  - Dyspnoea exertional [None]
  - Dizziness [None]
  - Fatigue [None]
  - Neuropathy peripheral [None]
  - Gait disturbance [None]
  - Productive cough [None]
  - Seasonal allergy [None]
  - Initial insomnia [None]
  - Depression [None]
  - Decreased activity [None]
  - Nervousness [None]
  - Dysphemia [None]

NARRATIVE: CASE EVENT DATE: 20220608
